FAERS Safety Report 10031869 (Version 1)
Quarter: 2014Q1

REPORT INFORMATION
  Report Type: Spontaneous
  Country: IT (occurrence: IT)
  Receive Date: 20140324
  Receipt Date: 20140324
  Transmission Date: 20141002
  Serious: Yes (Other)
  Sender: FDA-Public Use
  Company Number: IT-ELI_LILLY_AND_COMPANY-IT201403004783

PATIENT
  Age: 54 Year
  Sex: Female

DRUGS (3)
  1. DULOXETINE HYDROCHLORIDE [Suspect]
     Indication: NEURALGIA
     Dosage: 60 MG, UNK
     Route: 048
     Dates: start: 20130527, end: 20130709
  2. DARUNAVIR [Concomitant]
     Indication: ACUTE HIV INFECTION
  3. RITONAVIR [Concomitant]
     Indication: ACUTE HIV INFECTION

REACTIONS (6)
  - Syncope [Unknown]
  - Headache [Unknown]
  - Nausea [Unknown]
  - Hypertension [Unknown]
  - Alanine aminotransferase increased [Unknown]
  - Off label use [Unknown]
